FAERS Safety Report 4371985-7 (Version None)
Quarter: 2004Q2

REPORT INFORMATION
  Report Type: 
  Country: None (occurrence: None)
  Receive Date: 20040602
  Receipt Date: 20040521
  Transmission Date: 20050107
  Serious: Yes (Hospitalization, Other)
  Sender: FDA-Public Use
  Company Number: HQWYE066221MAY04

PATIENT
  Age: 77 Year
  Sex: Female

DRUGS (6)
  1. CORDARONE [Suspect]
     Indication: ATRIAL FIBRILLATION
     Dosage: 200 MG 1X PER 1 DAY ORAL
     Route: 048
     Dates: start: 20040304, end: 20040317
  2. INNOHEP [Suspect]
     Indication: ATRIAL FIBRILLATION
     Dosage: 1 UNIT 1X PER 1 DAY SC
     Route: 058
     Dates: start: 20040304, end: 20040314
  3. SIMVASTATIN [Suspect]
     Dosage: 10 MG 1X PER 1 DAY ORAL
     Route: 048
     Dates: end: 20040318
  4. PREVISCAN (FLUINDIONE, ) [Suspect]
     Indication: ATRIAL FIBRILLATION
     Dosage: 10 MG 1X PER 1 DAY ORAL
     Route: 048
     Dates: start: 20040304, end: 20040315
  5. VERATRAN (CLOTIAZEPAM) [Suspect]
     Dosage: 2 UNIT 1X PER 1 DAY ORAL
     Route: 048
     Dates: end: 20040318
  6. DIGOXIN [Concomitant]

REACTIONS (3)
  - PURPURA [None]
  - RASH MACULO-PAPULAR [None]
  - URTICARIA GENERALISED [None]
